FAERS Safety Report 5166610-1 (Version None)
Quarter: 2006Q4

REPORT INFORMATION
  Report Type: 
  Country: None (occurrence: None)
  Receive Date: 20061207
  Receipt Date: 20061130
  Transmission Date: 20070319
  Serious: Yes (Life-Threatening, Hospitalization, Disabling)
  Sender: FDA-Public Use
  Company Number: FR-AVENTIS-200614245FR

PATIENT
  Age: 64 Year
  Sex: Male

DRUGS (4)
  1. TAXOTERE [Suspect]
     Indication: LARYNGEAL CANCER
     Route: 042
     Dates: start: 20061106, end: 20061106
  2. CISPLATIN [Suspect]
     Indication: LARYNGEAL CANCER
     Route: 042
     Dates: start: 20061106, end: 20061106
  3. FLUOROURACIL [Suspect]
     Indication: LARYNGEAL CANCER
     Route: 042
     Dates: start: 20061106, end: 20061110
  4. LOXEN [Concomitant]
     Indication: DRUG USE FOR UNKNOWN INDICATION

REACTIONS (1)
  - GASTROINTESTINAL NECROSIS [None]
